FAERS Safety Report 4719268-7 (Version None)
Quarter: 2005Q3

REPORT INFORMATION
  Report Type: 
  Country: None (occurrence: None)
  Receive Date: 20050719
  Receipt Date: 20050719
  Transmission Date: 20060218
  Serious: Yes (Other)
  Sender: FDA-Public Use
  Company Number: None

PATIENT
  Age: 56 Year
  Sex: Male
  Weight: 82.1011 kg

DRUGS (1)
  1. DURAGESIC-100 [Suspect]
     Indication: ANGIOPATHY
     Dosage: 100 EVERY 72 HRS
     Dates: start: 20030101, end: 20050719

REACTIONS (3)
  - CHEST PAIN [None]
  - DYSPNOEA [None]
  - MICTURITION DISORDER [None]
